FAERS Safety Report 24746406 (Version 1)
Quarter: 2024Q4

REPORT INFORMATION
  Report Type: Spontaneous
  Country: NO (occurrence: NO)
  Receive Date: 20241218
  Receipt Date: 20241218
  Transmission Date: 20250114
  Serious: Yes (Other)
  Sender: UCB
  Company Number: None

PATIENT
  Age: 9 Month
  Sex: Female
  Weight: 10.3 kg

DRUGS (3)
  1. KEPPRA [Suspect]
     Active Substance: LEVETIRACETAM
     Indication: Epilepsy
     Dosage: 250 MG (2.5 ML) TWICE DAILY (WHICH CORRESPONDS TO 48,5 MG/KG/DAY).
     Route: 048
     Dates: start: 20240213, end: 20241112
  2. KEPPRA [Suspect]
     Active Substance: LEVETIRACETAM
     Dosage: 200 MILLIGRAM CONTINUED USE OF MEDICINAL PRODUCT
     Dates: start: 20241112
  3. MIDAZOLAM HYDROCHLORIDE [Concomitant]
     Active Substance: MIDAZOLAM HYDROCHLORIDE
     Indication: Epilepsy
     Dosage: 2,5 MG ADMINISTERED AFTER 1 MINUTE WITH RESPIRATORY ARREST OR 3 MINUTES WITH GENERALISED TONIC-CLONI

REACTIONS (3)
  - White blood cell count decreased [Unknown]
  - Neutrophil count decreased [Unknown]
  - Neutropenia [Unknown]

NARRATIVE: CASE EVENT DATE: 20240227
